FAERS Safety Report 5498468-5 (Version None)
Quarter: 2007Q4

REPORT INFORMATION
  Report Type: 
  Country: None (occurrence: None)
  Receive Date: 20071024
  Receipt Date: 20071014
  Transmission Date: 20080405
  Serious: Yes (Hospitalization)
  Sender: FDA-Public Use
  Company Number: 440035K07USA

PATIENT
  Age: 41 Year
  Sex: Male
  Weight: 74.3899 kg

DRUGS (3)
  1. SEROSTIM [Suspect]
     Indication: CACHEXIA
     Dosage: 6 MG, 1 IN 1 DAYS, 3 MCG, 1 IN 2 DAYS
     Dates: start: 20071005, end: 20071009
  2. SEROSTIM [Suspect]
     Indication: CACHEXIA
     Dosage: 6 MG, 1 IN 1 DAYS, 3 MCG, 1 IN 2 DAYS
     Dates: start: 20071015
  3. MULTIPLE MEDICATIONS (ALL OTHER THERAPEUTIC PRODUCTS) [Concomitant]

REACTIONS (10)
  - BACK PAIN [None]
  - BLOOD PRESSURE INCREASED [None]
  - BODY TEMPERATURE INCREASED [None]
  - CHEST PAIN [None]
  - CLAUSTROPHOBIA [None]
  - INFLUENZA LIKE ILLNESS [None]
  - INSOMNIA [None]
  - PAIN [None]
  - STRESS AT WORK [None]
  - WEIGHT DECREASED [None]
